FAERS Safety Report 10163389 (Version 1)
Quarter: 2014Q2

REPORT INFORMATION
  Report Type: Spontaneous
  Country: US (occurrence: US)
  Receive Date: 20140509
  Receipt Date: 20140509
  Transmission Date: 20141212
  Serious: No
  Sender: FDA-Public Use
  Company Number: US-009507513-2012SP036214

PATIENT
  Age: 5 Year
  Sex: Female
  Weight: 23.13 kg

DRUGS (1)
  1. CLARITIN [Suspect]
     Indication: NO ADVERSE EVENT
     Dosage: 10 MG, ONCE
     Route: 048
     Dates: start: 20120601

REACTIONS (2)
  - Accidental exposure to product by child [Not Recovered/Not Resolved]
  - Overdose [Unknown]
